FAERS Safety Report 21088356 (Version 2)
Quarter: 2022Q3

REPORT INFORMATION
  Report Type: Spontaneous
  Country: US (occurrence: US)
  Receive Date: 20220715
  Receipt Date: 20220725
  Transmission Date: 20221027
  Serious: Yes (Other)
  Sender: FDA-Public Use
  Company Number: ALC2022US003281

PATIENT
  Age: 68 Year
  Sex: Female

DRUGS (6)
  1. BSS [Suspect]
     Active Substance: CALCIUM CHLORIDE\MAGNESIUM CHLORIDE\POTASSIUM CHLORIDE\SODIUM ACETATE\SODIUM CHLORIDE\SODIUM CITRATE
     Indication: Product used for unknown indication
     Dosage: UNK
     Route: 065
  2. POVIDONE-IODINE [Suspect]
     Active Substance: POVIDONE-IODINE
     Indication: Preoperative care
     Dosage: UNK
     Route: 065
  3. PRED FORTE [Suspect]
     Active Substance: PREDNISOLONE ACETATE
     Indication: Postoperative care
     Dosage: UNK UNK, QD
     Route: 065
  4. CIPRO [Suspect]
     Active Substance: CIPROFLOXACIN HYDROCHLORIDE
     Indication: Postoperative care
     Dosage: UNK UNK, QID
     Route: 065
  5. BROMSITE [Suspect]
     Active Substance: BROMFENAC SODIUM
     Indication: Postoperative care
     Dosage: UNK UNK, BID
     Route: 065
  6. LIDOCAINE [Suspect]
     Active Substance: LIDOCAINE
     Indication: Preoperative care
     Dosage: UNK

REACTIONS (1)
  - Toxic anterior segment syndrome [Recovered/Resolved]

NARRATIVE: CASE EVENT DATE: 20220615
